FAERS Safety Report 5979640-4 (Version None)
Quarter: 2008Q4

REPORT INFORMATION
  Report Type: 
  Country: None (occurrence: None)
  Receive Date: 20081204
  Receipt Date: 20081121
  Transmission Date: 20090506
  Serious: Yes (Other)
  Sender: FDA-Public Use
  Company Number: US-MERCK-0811USA04085

PATIENT
  Age: 49 Year
  Sex: Male

DRUGS (3)
  1. COSOPT [Suspect]
     Route: 061
     Dates: start: 20000924
  2. APRACLONIDINE [Suspect]
     Route: 061
     Dates: start: 20000924
  3. TIMOPTIC [Suspect]
     Route: 061
     Dates: start: 20000924

REACTIONS (4)
  - INTRAOCULAR PRESSURE INCREASED [None]
  - MACULAR DEGENERATION [None]
  - OCULAR HYPERTENSION [None]
  - VISUAL ACUITY REDUCED [None]
